FAERS Safety Report 5521395-1 (Version None)
Quarter: 2007Q4

REPORT INFORMATION
  Report Type: 
  Country: None (occurrence: None)
  Receive Date: 20071119
  Receipt Date: 20071109
  Transmission Date: 20080405
  Serious: Yes (Other)
  Sender: FDA-Public Use
  Company Number: JP-MERCK-0710USA01307

PATIENT
  Age: 72 Year
  Sex: Female

DRUGS (5)
  1. PEPCID [Suspect]
     Indication: GASTRITIS
     Route: 048
  2. TAXOTERE [Concomitant]
     Indication: SMALL CELL LUNG CANCER STAGE UNSPECIFIED
     Route: 041
     Dates: start: 20070626
  3. PARAPLATIN [Concomitant]
     Indication: SMALL CELL LUNG CANCER STAGE UNSPECIFIED
     Route: 042
     Dates: start: 20070626
  4. WARFARIN [Concomitant]
     Indication: AORTIC VALVE REPLACEMENT
     Route: 048
  5. PARAMIDIN [Concomitant]
     Indication: AORTIC VALVE REPLACEMENT
     Route: 048

REACTIONS (1)
  - RADIATION SKIN INJURY [None]
